FAERS Safety Report 5071504-6 (Version None)
Quarter: 2006Q3

REPORT INFORMATION
  Report Type: 
  Country: None (occurrence: None)
  Receive Date: 20060714
  Receipt Date: 20060602
  Transmission Date: 20061208
  Serious: No
  Sender: FDA-Public Use
  Company Number: 2006SP002295

PATIENT
  Age: 48 Year
  Sex: Female

DRUGS (6)
  1. LUNESTA [Suspect]
     Indication: INSOMNIA
     Dosage: SEE IMAGE
     Route: 048
     Dates: start: 20060401, end: 20060501
  2. LUNESTA [Suspect]
     Indication: INSOMNIA
     Dosage: SEE IMAGE
     Route: 048
     Dates: start: 20060501, end: 20060601
  3. LEXAPRO [Concomitant]
  4. OXCARAZEPINE [Concomitant]
  5. ATORVASTATIN CALCIUM [Concomitant]
  6. IBANDRONATE SODIUM [Concomitant]

REACTIONS (2)
  - MIDDLE INSOMNIA [None]
  - VISION BLURRED [None]
